FAERS Safety Report 6375614-2 (Version None)
Quarter: 2009Q3

REPORT INFORMATION
  Report Type: 
  Country: None (occurrence: None)
  Receive Date: 20090924
  Receipt Date: 20090914
  Transmission Date: 20100115
  Serious: Yes (Hospitalization)
  Sender: FDA-Public Use
  Company Number: FR-AVENTIS-200913431FR

PATIENT
  Age: 71 Year
  Sex: Female

DRUGS (6)
  1. LOVENOX [Suspect]
     Indication: PROPHYLAXIS
     Route: 058
     Dates: start: 20090820, end: 20090825
  2. CORTANCYL [Concomitant]
     Route: 048
  3. METHOTREXATE [Concomitant]
  4. SPECIAFOLDINE [Concomitant]
     Route: 048
  5. CONTRAMAL [Concomitant]
     Route: 048
  6. CALCIDOSE VITAMINE D [Concomitant]
     Route: 048

REACTIONS (3)
  - FOLLICULITIS [None]
  - PRURITUS ALLERGIC [None]
  - RASH ERYTHEMATOUS [None]
